FAERS Safety Report 7568539-8 (Version None)
Quarter: 2011Q2

REPORT INFORMATION
  Report Type: 
  Country: None (occurrence: None)
  Receive Date: 20110623
  Receipt Date: 20110620
  Transmission Date: 20111010
  Serious: Yes (Other)
  Sender: FDA-Public Use
  Company Number: US-PFIZER INC-2011136522

PATIENT
  Sex: Female

DRUGS (1)
  1. SUTENT [Suspect]
     Dosage: UNK

REACTIONS (1)
  - VASCULITIC RASH [None]
